FAERS Safety Report 14055830 (Version 2)
Quarter: 2017Q4

REPORT INFORMATION
  Report Type: Report from Study
  Country: None (occurrence: GB)
  Receive Date: 20171006
  Receipt Date: 20171204
  Transmission Date: 20180321
  Serious: Yes (Death, Hospitalization)
  Sender: FDA-Public Use
  Company Number: GB-ABBVIE-17K-167-2123272-00

PATIENT
  Age: 71 Year
  Sex: Female

DRUGS (1)
  1. HUMIRA [Suspect]
     Active Substance: ADALIMUMAB
     Indication: RHEUMATOID ARTHRITIS
     Route: 058
     Dates: start: 20050509, end: 20060605

REACTIONS (5)
  - Cardiac arrest [Fatal]
  - Intestinal obstruction [Fatal]
  - Acute kidney injury [Fatal]
  - Acidosis [Fatal]
  - Hyperkalaemia [Fatal]

NARRATIVE: CASE EVENT DATE: 20170706
